FAERS Safety Report 8573576-0 (Version None)
Quarter: 2012Q3

REPORT INFORMATION
  Report Type: 
  Country: None (occurrence: None)
  Receive Date: 20120806
  Receipt Date: 20120724
  Transmission Date: 20120928
  Serious: No
  Sender: FDA-Public Use
  Company Number: US-ROXANE LABORATORIES, INC.-2012-RO-01447RO

PATIENT
  Sex: Female
  Weight: 156 kg

DRUGS (1)
  1. CODEINE SULFATE [Suspect]

REACTIONS (2)
  - NAUSEA [None]
  - VOMITING [None]
